FAERS Safety Report 10983253 (Version 1)
Quarter: 2015Q1

REPORT INFORMATION
  Report Type: Spontaneous
  Country: IT (occurrence: None)
  Receive Date: 20150302
  Receipt Date: 20150302
  Transmission Date: 20150721
  Serious: Yes (Other)
  Sender: FDA-Public Use
  Company Number: 2014SYM00042

PATIENT
  Age: 64 Year
  Sex: Male
  Weight: 77 kg

DRUGS (3)
  1. ACEON [Suspect]
     Active Substance: PERINDOPRIL ERBUMINE
     Indication: HYPERTENSION
     Dosage: 1 DF,  QD, ORAL
     Route: 048
     Dates: start: 20130417, end: 20140507
  2. ZYLORIC (ALLOPURINOL) [Suspect]
     Active Substance: ALLOPURINOL
     Indication: HYPERURICAEMIA
     Route: 048
     Dates: end: 20140507
  3. LOBIDIUR (HYDROCHLOROTHIAZIDE, NEBIVOLOL HYDROCHLORIDE) [Concomitant]

REACTIONS (1)
  - Angioedema [None]

NARRATIVE: CASE EVENT DATE: 20140507
